FAERS Safety Report 6998009-7 (Version None)
Quarter: 2010Q3

REPORT INFORMATION
  Report Type: 
  Country: None (occurrence: None)
  Receive Date: 20100920
  Receipt Date: 20070525
  Transmission Date: 20110219
  Serious: Yes (Other)
  Sender: FDA-Public Use
  Company Number: US-ASTRAZENECA-2006UW24065

PATIENT
  Age: 15806 Day
  Sex: Female
  Weight: 61.2 kg

DRUGS (15)
  1. SEROQUEL [Suspect]
     Indication: INSOMNIA
     Route: 048
     Dates: start: 19970101
  2. SEROQUEL [Suspect]
     Indication: PARANOIA
     Route: 048
     Dates: start: 19970101
  3. SEROQUEL [Suspect]
     Dosage: 50 TO 200 MG
     Route: 048
     Dates: start: 20031206
  4. SEROQUEL [Suspect]
     Dosage: 50 TO 200 MG
     Route: 048
     Dates: start: 20031206
  5. GEODON [Concomitant]
     Route: 048
     Dates: start: 20050525
  6. GEODON [Concomitant]
  7. ZYPREXA [Concomitant]
     Dates: start: 19980101
  8. CYMBALTA [Concomitant]
  9. WELLBUTRIN XL [Concomitant]
     Route: 048
     Dates: start: 20050524
  10. FLUOXETINE [Concomitant]
     Route: 048
     Dates: start: 20050524
  11. STELAZINE [Concomitant]
     Dates: start: 19820101
  12. LISINOPRIL [Concomitant]
     Dates: start: 20031206
  13. LIPITOR [Concomitant]
     Dates: start: 20041012
  14. ACTOS [Concomitant]
     Dates: start: 20000307
  15. GLYBURIDE [Concomitant]

REACTIONS (4)
  - DIABETES MELLITUS [None]
  - DIABETES MELLITUS INADEQUATE CONTROL [None]
  - TYPE 1 DIABETES MELLITUS [None]
  - TYPE 2 DIABETES MELLITUS [None]
